FAERS Safety Report 19157556 (Version 13)
Quarter: 2025Q4

REPORT INFORMATION
  Report Type: Spontaneous
  Country: EU (occurrence: EU)
  Receive Date: 20210420
  Receipt Date: 20251211
  Transmission Date: 20260118
  Serious: Yes (Death, Life-Threatening, Hospitalization, Other)
  Sender: RANBAXY
  Company Number: EU-SUN PHARMACEUTICAL INDUSTRIES LTD-2021R1-292031

PATIENT
  Age: 51 Year
  Sex: Female

DRUGS (8)
  1. MORPHINE [Interacting]
     Active Substance: MORPHINE
     Indication: Substance use
     Dosage: UNK
     Route: 065
  2. PREGABALIN [Interacting]
     Active Substance: PREGABALIN
     Indication: Substance abuse
     Dosage: UNK
     Route: 065
  3. QUETIAPINE [Suspect]
     Active Substance: QUETIAPINE
     Indication: Drug abuse
     Route: 065
  4. CODEINE [Interacting]
     Active Substance: CODEINE
     Indication: Substance use
     Dosage: UNK
     Route: 065
  5. DIAZEPAM [Interacting]
     Active Substance: DIAZEPAM
     Indication: Substance use
     Dosage: UNK
     Route: 065
  6. METHADONE [Interacting]
     Active Substance: METHADONE HYDROCHLORIDE
     Indication: Substance use
     Dosage: UNK
     Route: 065
  7. COCAINE HYDROCHLORIDE [Interacting]
     Active Substance: COCAINE HYDROCHLORIDE
     Indication: Drug abuse
     Dosage: UNK
     Route: 065
  8. LYRICA [Interacting]
     Active Substance: PREGABALIN
     Indication: Substance use
     Dosage: UNK
     Route: 065

REACTIONS (13)
  - Visceral congestion [Fatal]
  - Intentional product misuse [Fatal]
  - Asphyxia [Fatal]
  - Drug interaction [Fatal]
  - Overdose [Fatal]
  - Substance abuse [Fatal]
  - Respiratory depression [Fatal]
  - Asphyxia [Fatal]
  - Substance abuse [Fatal]
  - Intentional product misuse [Fatal]
  - Drug abuse [Fatal]
  - Toxicity to various agents [Fatal]
  - Poisoning [Fatal]
